FAERS Safety Report 19635128 (Version 2)
Quarter: 2021Q3

REPORT INFORMATION
  Report Type: Report from Study
  Country: TW (occurrence: TW)
  Receive Date: 20210729
  Receipt Date: 20210810
  Transmission Date: 20211014
  Serious: Yes (Hospitalization)
  Sender: FDA-Public Use
  Company Number: TW-JNJFOC-20210761407

PATIENT
  Age: 83 Year
  Sex: Male

DRUGS (39)
  1. VALSARTAN. [Concomitant]
     Active Substance: VALSARTAN
     Dosage: 1 DF, BID
     Route: 048
     Dates: start: 20210715, end: 20210721
  2. ISOSORBIDE MONONITRATE. [Concomitant]
     Active Substance: ISOSORBIDE MONONITRATE
     Dosage: 1 DF, BID
     Route: 048
     Dates: start: 20210310, end: 20210320
  3. INSULIN ASPART [Concomitant]
     Active Substance: INSULIN ASPART
     Dosage: 5 U, SC, QPM
     Dates: start: 20210304
  4. XARELTO [Suspect]
     Active Substance: RIVAROXABAN
     Indication: THROMBOSIS PROPHYLAXIS
     Dosage: 10 MG, QD
     Route: 048
     Dates: start: 20210312
  5. SPIRONOLACTONE. [Concomitant]
     Active Substance: SPIRONOLACTONE
     Dosage: 0.5 DF, QD
     Route: 048
     Dates: start: 20210219
  6. ZOLPIDEM HEMITARTRATE [Concomitant]
     Active Substance: ZOLPIDEM TARTRATE
     Dosage: 0.5 DF, PRN
     Route: 048
     Dates: start: 20210311, end: 20210320
  7. INSULINS AND ANALOGUES FOR INJECTION, LONG?ACTING [Concomitant]
     Dosage: 15 U, QD
     Dates: start: 20210304
  8. INSULINS AND ANALOGUES FOR INJECTION, LONG?ACTING [Concomitant]
     Dosage: 15 U, QD
     Dates: start: 20210310, end: 20210311
  9. INSULIN ASPART [Concomitant]
     Active Substance: INSULIN ASPART
     Dosage: 2 U, SC, ASORDER
     Dates: start: 20210310, end: 20210311
  10. SPIRONOLACTONE. [Concomitant]
     Active Substance: SPIRONOLACTONE
     Dosage: 0.5 DF, QD
     Route: 048
     Dates: start: 20210715, end: 20210724
  11. LINAGLIPTIN [Concomitant]
     Active Substance: LINAGLIPTIN
     Dosage: 1 DF, QD
     Route: 048
     Dates: start: 20210304
  12. INSULIN [Concomitant]
     Active Substance: INSULIN NOS
     Dosage: 10 U, SC, STAT
     Dates: start: 20210310, end: 20210311
  13. INSULIN [Concomitant]
     Active Substance: INSULIN NOS
     Dosage: 2 U, PSC, RN
     Dates: start: 20210310, end: 20210310
  14. ZOLPIDEM HEMITARTRATE [Concomitant]
     Active Substance: ZOLPIDEM TARTRATE
     Dosage: 0.5 DF, PRN
     Route: 048
     Dates: start: 20210310, end: 20210310
  15. GLIMEPIRIDE. [Concomitant]
     Active Substance: GLIMEPIRIDE
     Dosage: 1 DF, QD
     Route: 048
     Dates: start: 20210304
  16. INSULIN ASPART [Concomitant]
     Active Substance: INSULIN ASPART
     Dosage: 2 U, SC, ASORDER
     Dates: start: 20210311, end: 20210314
  17. AMLODIPINE BESYLATE. [Concomitant]
     Active Substance: AMLODIPINE BESYLATE
     Dosage: 1 DF, QD
     Route: 048
     Dates: start: 20210715, end: 20210724
  18. LINAGLIPTIN [Concomitant]
     Active Substance: LINAGLIPTIN
     Dosage: 1 DF, QD
     Route: 048
     Dates: start: 20210310, end: 20210320
  19. GLIMEPIRIDE. [Concomitant]
     Active Substance: GLIMEPIRIDE
     Dosage: 1 DF, QD
     Route: 048
     Dates: start: 20210310, end: 20210320
  20. DIPHENHYDRAMIN HCL [Concomitant]
     Active Substance: DIPHENHYDRAMINE HYDROCHLORIDE
     Dosage: 30 MG, ONCE
     Dates: start: 20210309, end: 20210310
  21. XARELTO [Suspect]
     Active Substance: RIVAROXABAN
     Indication: CEREBROVASCULAR ACCIDENT PROPHYLAXIS
     Dosage: 10 MG, QD
     Route: 048
     Dates: start: 20200904, end: 20210310
  22. ACETAMINOPHEN. [Concomitant]
     Active Substance: ACETAMINOPHEN
     Dosage: 1 DF, QD
     Route: 048
     Dates: start: 20210308, end: 20210309
  23. ISOSORBIDE MONONITRATE. [Concomitant]
     Active Substance: ISOSORBIDE MONONITRATE
     Dosage: 1 DF, BID
     Route: 048
     Dates: start: 20210219
  24. ISOSORBIDE MONONITRATE. [Concomitant]
     Active Substance: ISOSORBIDE MONONITRATE
     Dosage: 1 DF, BID
     Route: 048
     Dates: start: 20210715, end: 20210718
  25. LACTATED RINGERS SOLUTION [Concomitant]
     Active Substance: CALCIUM CHLORIDE\POTASSIUM CHLORIDE\SODIUM CHLORIDE\SODIUM LACTATE
     Dosage: 500 ML, STAT
     Dates: start: 20210308, end: 20210309
  26. ACETAMINOPHEN. [Concomitant]
     Active Substance: ACETAMINOPHEN
     Dosage: 1 DF, PRN
     Route: 048
     Dates: start: 20210309, end: 20210310
  27. ACETAMINOPHEN. [Concomitant]
     Active Substance: ACETAMINOPHEN
     Dosage: 1 DF, PRN
     Route: 048
     Dates: start: 20210310, end: 20210320
  28. SPIRONOLACTONE. [Concomitant]
     Active Substance: SPIRONOLACTONE
     Dosage: 0.5 DF, QD
     Route: 048
     Dates: start: 20210310, end: 20210320
  29. FUROSEMIDE. [Concomitant]
     Active Substance: FUROSEMIDE
     Dosage: 0.5 DF, QD
     Route: 048
     Dates: start: 20210219
  30. VALSARTAN. [Concomitant]
     Active Substance: VALSARTAN
     Dosage: 1 DF, BID
     Route: 048
     Dates: start: 20210310, end: 20210320
  31. EDOXABAN [Concomitant]
     Active Substance: EDOXABAN TOSYLATE
     Dosage: 0.5 DF, QD
     Route: 048
     Dates: start: 20210715, end: 20210723
  32. SUCRALFATE. [Concomitant]
     Active Substance: SUCRALFATE
     Dosage: 1 DF, STAT
     Route: 048
     Dates: start: 20210308, end: 20210309
  33. ESOMEPRAZOLE. [Concomitant]
     Active Substance: ESOMEPRAZOLE MAGNESIUM
     Dosage: 40 MG, QD
     Route: 042
     Dates: start: 20210315, end: 20210316
  34. INSULIN ASPART [Concomitant]
     Active Substance: INSULIN ASPART
     Dosage: 2 U, SC, ASORDER
     Dates: start: 20210314, end: 20210320
  35. FUROSEMIDE. [Concomitant]
     Active Substance: FUROSEMIDE
     Dosage: 0.5 DF, QD
     Route: 048
     Dates: start: 20210310, end: 20210310
  36. VALSARTAN. [Concomitant]
     Active Substance: VALSARTAN
     Dosage: 1 DF, BID
     Route: 048
     Dates: start: 20210219
  37. ZOLPIDEM HEMITARTRATE [Concomitant]
     Active Substance: ZOLPIDEM TARTRATE
     Dosage: 0.5 DF, PRN
     Route: 048
     Dates: start: 20210304
  38. INSULINS AND ANALOGUES FOR INJECTION, LONG?ACTING [Concomitant]
     Dosage: 12 U, QD
     Dates: start: 20210312, end: 20210320
  39. INSULIN ASPART [Concomitant]
     Active Substance: INSULIN ASPART
     Dosage: 5 U, SC, QPM
     Dates: start: 20210310, end: 20210311

REACTIONS (3)
  - Hepatic encephalopathy [Recovered/Resolved]
  - Upper gastrointestinal haemorrhage [Recovered/Resolved]
  - Blood loss anaemia [Recovered/Resolved]

NARRATIVE: CASE EVENT DATE: 20210309
